FAERS Safety Report 8536931-0 (Version None)
Quarter: 2012Q3

REPORT INFORMATION
  Report Type: 
  Country: None (occurrence: None)
  Receive Date: 20120725
  Receipt Date: 20120719
  Transmission Date: 20120928
  Serious: No
  Sender: FDA-Public Use
  Company Number: US-BAYER-2012-072834

PATIENT
  Age: 63 Year
  Sex: Female

DRUGS (2)
  1. CLIMARA [Suspect]
     Dosage: 0.025 MG, CONT
     Route: 062
     Dates: start: 20120101
  2. UNSPECIFIED DIABETES MEDICATION [Concomitant]
     Indication: DIABETES MELLITUS

REACTIONS (1)
  - HOT FLUSH [None]
